FAERS Safety Report 9229909 (Version 1)
Quarter: 2013Q2

REPORT INFORMATION
  Report Type: Spontaneous
  Country: US (occurrence: None)
  Receive Date: 20130411
  Receipt Date: 20130411
  Transmission Date: 20140414
  Serious: Yes (Hospitalization)
  Sender: FDA-Public Use
  Company Number: CIO13020044

PATIENT
  Age: 46 Year
  Sex: Male

DRUGS (6)
  1. NYQUIL [Suspect]
     Dosage: IN ONE NIGHT
     Route: 048
  2. NYQUIL [Suspect]
     Dosage: IN ONE NIGHT
     Route: 048
  3. NYQUIL [Suspect]
     Dosage: IN ONE NIGHT
     Route: 048
  4. SERTRALINE (SERTRALINE) (SERTRALINE) [Suspect]
     Dosage: FOR 2 YEARS
     Route: 048
  5. METFORMIN (METFORMIN) [Concomitant]
  6. LEVOTHYROXINE (LEVOTHYROXINE) [Concomitant]

REACTIONS (21)
  - Serotonin syndrome [None]
  - Incorrect dose administered [None]
  - Confusional state [None]
  - Chills [None]
  - Agitation [None]
  - Pyrexia [None]
  - Hyperhidrosis [None]
  - Stupor [None]
  - Diarrhoea [None]
  - Tachycardia [None]
  - Blood pressure increased [None]
  - Tachypnoea [None]
  - Hyperthermia [None]
  - Mydriasis [None]
  - Gastrointestinal sounds abnormal [None]
  - Hyperreflexia [None]
  - Tremor [None]
  - Muscle rigidity [None]
  - Metabolic acidosis [None]
  - Blood urea increased [None]
  - Blood creatinine increased [None]
